FAERS Safety Report 5873270-0 (Version None)
Quarter: 2008Q3

REPORT INFORMATION
  Report Type: 
  Country: None (occurrence: None)
  Receive Date: 20080829
  Receipt Date: 20080811
  Transmission Date: 20090109
  Serious: Yes (Death)
  Sender: FDA-Public Use
  Company Number: 20080236  /

PATIENT
  Age: 36 Year
  Sex: Male

DRUGS (3)
  1. VENOFER [Suspect]
  2. REMICADE [Suspect]
     Dosage: 235 MG INTRAVENOUS
     Route: 042
     Dates: start: 20040101, end: 20070213
  3. AZATHIOPRINE [Concomitant]

REACTIONS (1)
  - SUDDEN DEATH [None]
